FAERS Safety Report 21510672 (Version 1)
Quarter: 2022Q4

REPORT INFORMATION
  Report Type: Spontaneous
  Country: US (occurrence: US)
  Receive Date: 20221026
  Receipt Date: 20221026
  Transmission Date: 20230112
  Serious: No
  Sender: FDA-Public Use
  Company Number: US-PURDUE PHARMA-USA-2022-0295484

PATIENT
  Age: 54 Year
  Sex: Female
  Weight: 71.66 kg

DRUGS (2)
  1. OXYCODONE HYDROCHLORIDE [Suspect]
     Active Substance: OXYCODONE HYDROCHLORIDE
     Indication: Wound
     Dosage: 10 MILLIGRAM
     Route: 065
     Dates: start: 20220721, end: 20220723
  2. OXYCODONE HYDROCHLORIDE [Suspect]
     Active Substance: OXYCODONE HYDROCHLORIDE
     Indication: Pain

REACTIONS (9)
  - Burning sensation [Unknown]
  - Pain [Unknown]
  - Product expiration date issue [Unknown]
  - Rash [Unknown]
  - Hypoaesthesia [Unknown]
  - Myalgia [Unknown]
  - Pain of skin [Unknown]
  - Vision blurred [Unknown]
  - Blister [Unknown]

NARRATIVE: CASE EVENT DATE: 20220721
